FAERS Safety Report 11655463 (Version 1)
Quarter: 2015Q4

REPORT INFORMATION
  Report Type: Spontaneous
  Country: US (occurrence: None)
  Receive Date: 20151022
  Receipt Date: 20151022
  Transmission Date: 20160304
  Serious: No
  Sender: FDA-Public Use
  Company Number: None

PATIENT
  Age: 60 Year
  Sex: Female

DRUGS (11)
  1. FOLIC ACID. [Concomitant]
     Active Substance: FOLIC ACID
  2. TORSEMIDE. [Concomitant]
     Active Substance: TORSEMIDE
  3. ALPRZOLAM [Concomitant]
  4. OXYCODONE [Concomitant]
     Active Substance: OXYCODONE
  5. OMEPRAZOLE. [Concomitant]
     Active Substance: OMEPRAZOLE
  6. THIAMINE. [Concomitant]
     Active Substance: THIAMINE
  7. DRAMAMINE [Concomitant]
     Active Substance: DIMENHYDRINATE
  8. AMBIEN [Concomitant]
     Active Substance: ZOLPIDEM TARTRATE
  9. LORAZEPAM. [Concomitant]
     Active Substance: LORAZEPAM
  10. SUTENT [Suspect]
     Active Substance: SUNITINIB MALATE
     Indication: PANCREATIC CARCINOMA
     Route: 048
     Dates: start: 20150603
  11. CYCLOBENZAPR [Concomitant]

REACTIONS (3)
  - Feeling hot [None]
  - Fatigue [None]
  - Dysgeusia [None]

NARRATIVE: CASE EVENT DATE: 201508
